FAERS Safety Report 6780330-9 (Version None)
Quarter: 2010Q2

REPORT INFORMATION
  Report Type: 
  Country: None (occurrence: None)
  Receive Date: 20100618
  Receipt Date: 20100611
  Transmission Date: 20101027
  Serious: Yes (Death)
  Sender: FDA-Public Use
  Company Number: JP-ALLERGAN-1007806US

PATIENT
  Age: 3 Year
  Sex: Male

DRUGS (2)
  1. BOTOX [Suspect]
     Indication: TORTICOLLIS
     Dosage: UNK
     Route: 030
     Dates: start: 20060714, end: 20060714
  2. BOTOX [Suspect]
     Dosage: UNK
     Dates: start: 20070907, end: 20070907

REACTIONS (1)
  - DEATH [None]
